FAERS Safety Report 5786536-X (Version None)
Quarter: 2008Q2

REPORT INFORMATION
  Report Type: 
  Country: None (occurrence: None)
  Receive Date: 20080624
  Receipt Date: 20080619
  Transmission Date: 20081010
  Serious: Yes (Life-Threatening)
  Sender: FDA-Public Use
  Company Number: JP-BRISTOL-MYERS SQUIBB COMPANY-14234322

PATIENT
  Age: 65 Year
  Sex: Female

DRUGS (2)
  1. PARAPLATIN [Suspect]
     Indication: GENITAL NEOPLASM MALIGNANT FEMALE
     Route: 041
  2. TAXOL [Suspect]
     Indication: GENITAL NEOPLASM MALIGNANT FEMALE
     Route: 041

REACTIONS (1)
  - INTESTINAL PERFORATION [None]
